FAERS Safety Report 7792186-6 (Version None)
Quarter: 2011Q4

REPORT INFORMATION
  Report Type: 
  Country: None (occurrence: None)
  Receive Date: 20111003
  Receipt Date: 20111003
  Transmission Date: 20120403
  Serious: Yes (Life-Threatening)
  Sender: FDA-Public Use
  Company Number: None

PATIENT
  Age: 16 Year
  Sex: Male
  Weight: 106.59 kg

DRUGS (2)
  1. SERTRALINE HYDROCHLORIDE [Suspect]
     Indication: DEPRESSION
     Dosage: 25 MG
     Route: 048
     Dates: start: 20110921, end: 20110927
  2. DIPHENHYDRAMINE HCL [Concomitant]
     Route: 048

REACTIONS (7)
  - DRUG DOSE OMISSION [None]
  - SUICIDAL IDEATION [None]
  - HEADACHE [None]
  - INITIAL INSOMNIA [None]
  - ANXIETY [None]
  - INCORRECT DOSE ADMINISTERED [None]
  - FEAR [None]
